FAERS Safety Report 8712430 (Version 2)
Quarter: 2013Q1

REPORT INFORMATION
  Report Type: Report from Study
  Country: JP (occurrence: JP)
  Receive Date: 20120808
  Receipt Date: 20130301
  Transmission Date: 20140127
  Serious: Yes (Hospitalization, Other)
  Sender: FDA-Public Use
  Company Number: JP-SHIRE-ALL1-2011-01747

PATIENT
  Age: 81 Year
  Sex: Female

DRUGS (16)
  1. 405 (LANTHANUM CARBONATE) [Suspect]
     Indication: HYPERPHOSPHATAEMIA
     Dosage: 750 MG, OTHER (IMMEDIATELY AFTER MEALS)
     Route: 048
     Dates: start: 20100408, end: 20101115
  2. 405 (LANTHANUM CARBONATE) [Suspect]
     Dosage: 1500 MG, 1X/DAY:QD
     Route: 048
     Dates: start: 20101116, end: 20110516
  3. CALTAN [Concomitant]
     Indication: HYPERPHOSPHATAEMIA
     Dosage: 1.5 G, UNKNOWN
     Route: 048
     Dates: start: 20050301, end: 20111017
  4. ALFAROL [Concomitant]
     Indication: PRODUCT USED FOR UNKNOWN INDICATION
     Dosage: 0.25 ?G, UNKNOWN
     Route: 048
     Dates: start: 20060829, end: 20110318
  5. ALFAROL [Concomitant]
     Dosage: 0.5 ?G, UNKNOWN
     Route: 048
     Dates: start: 20110322, end: 2011
  6. ALFAROL [Concomitant]
     Dosage: 0.25 ?G, UNKNOWN
     Route: 048
     Dates: start: 20110418, end: 20111212
  7. ALFAROL [Concomitant]
     Dosage: 1 ?G, 1X/WEEK
     Route: 048
     Dates: start: 20111214
  8. REGPARA [Concomitant]
     Indication: HYPERPARATHYROIDISM SECONDARY
     Dosage: 100 MG, 1X/WEEK
     Route: 048
     Dates: start: 20100125
  9. ARGAMATE [Concomitant]
     Indication: PRODUCT USED FOR UNKNOWN INDICATION
     Dosage: 50 MG, UNKNOWN
     Route: 048
  10. ITOROL [Concomitant]
     Indication: PRODUCT USED FOR UNKNOWN INDICATION
     Dosage: 40 MG, UNKNOWN
     Route: 048
  11. BAYASPIRIN [Concomitant]
     Indication: PRODUCT USED FOR UNKNOWN INDICATION
     Dosage: 100 MG, UNKNOWN
     Route: 048
  12. PANALDINE [Concomitant]
     Indication: PRODUCT USED FOR UNKNOWN INDICATION
     Dosage: 100 MG, UNKNOWN
     Route: 048
  13. ZANTAC [Concomitant]
     Indication: PRODUCT USED FOR UNKNOWN INDICATION
     Dosage: 150 MG, UNKNOWN
     Route: 058
  14. RISUMIC [Concomitant]
     Indication: PRODUCT USED FOR UNKNOWN INDICATION
     Dosage: 10 MG, UNKNOWN
     Route: 048
  15. LIVALO [Concomitant]
     Indication: PRODUCT USED FOR UNKNOWN INDICATION
     Dosage: 2 MG, UNKNOWN
     Route: 048
  16. ALOSENN                            /00476901/ [Concomitant]
     Indication: PRODUCT USED FOR UNKNOWN INDICATION
     Dosage: 0.5 G, UNKNOWN
     Route: 048

REACTIONS (4)
  - Peripheral arterial occlusive disease [Not Recovered/Not Resolved]
  - Enterocolitis infectious [Recovered/Resolved]
  - Angina pectoris [Recovered/Resolved]
  - Colitis ischaemic [Recovered/Resolved]
